FAERS Safety Report 9323850 (Version 1)
Quarter: 2013Q2

REPORT INFORMATION
  Report Type: Spontaneous
  Country: US (occurrence: US)
  Receive Date: 20130603
  Receipt Date: 20130603
  Transmission Date: 20140414
  Serious: Yes (Other)
  Sender: FDA-Public Use
  Company Number: US-BAYER-2013-066939

PATIENT
  Age: 54 Year
  Sex: Male

DRUGS (5)
  1. AVELOX [Suspect]
     Indication: PNEUMONIA
     Dosage: 400 MG, DAILY
  2. HUMIRA [Suspect]
     Indication: CROHN^S DISEASE
     Dosage: UNK
     Dates: start: 20120907, end: 20130413
  3. DOXYCYCLINE [Suspect]
     Dosage: 100 MG, UNK
     Dates: start: 201304
  4. AZATHIOPRINE [Concomitant]
     Dosage: 150 MG, TID
  5. B12 [Concomitant]
     Dosage: 1000MG 1 IN 2 WEEK

REACTIONS (2)
  - Coccidioidomycosis [None]
  - Pneumonia [None]
